FAERS Safety Report 8354354-4 (Version None)
Quarter: 2012Q2

REPORT INFORMATION
  Report Type: 
  Country: None (occurrence: None)
  Receive Date: 20120511
  Receipt Date: 20120502
  Transmission Date: 20120825
  Serious: No
  Sender: FDA-Public Use
  Company Number: US-JNJFOC-20120504190

PATIENT
  Sex: Male
  Weight: 117.94 kg

DRUGS (8)
  1. LISINOPRIL [Concomitant]
     Indication: HYPERTENSION
     Dosage: 20/25MG /DAILY
     Route: 048
  2. DURAGESIC-100 [Suspect]
     Dosage: AS NEEDED
     Route: 062
  3. LEXAPRO [Concomitant]
     Indication: DEPRESSION
     Route: 048
  4. LORTAB [Concomitant]
     Indication: PAIN
     Dosage: 10/325MG UP TO 4 TIMES DAILY AS NEEDED
     Route: 065
     Dates: start: 20020101
  5. ATENOLOL [Concomitant]
     Indication: HYPERTENSION
     Route: 048
  6. DURAGESIC-100 [Suspect]
     Indication: BACK PAIN
     Dosage: AS NEEDED
     Route: 062
  7. FENTANYL-100 [Suspect]
     Indication: BACK PAIN
     Dosage: AS NEEDED
     Route: 062
  8. CLONAZEPAM [Concomitant]
     Indication: RESTLESS LEGS SYNDROME
     Route: 048

REACTIONS (4)
  - BLOOD CHOLESTEROL INCREASED [None]
  - THINKING ABNORMAL [None]
  - DRUG PRESCRIBING ERROR [None]
  - DRUG EFFECT DECREASED [None]
